FAERS Safety Report 14751278 (Version 3)
Quarter: 2018Q2

REPORT INFORMATION
  Report Type: Report from Study
  Country: IT (occurrence: IT)
  Receive Date: 20180412
  Receipt Date: 20180606
  Transmission Date: 20180711
  Serious: Yes (Death, Hospitalization)
  Sender: FDA-Public Use
  Company Number: IT-CELGENEUS-ITA-20180310548

PATIENT
  Age: 59 Year
  Sex: Male
  Weight: 58 kg

DRUGS (22)
  1. ISTODAX [Suspect]
     Active Substance: ROMIDEPSIN
     Indication: T-CELL LYMPHOMA
     Route: 041
     Dates: start: 20180316
  2. DOXORUBICINE [Suspect]
     Active Substance: DOXORUBICIN
     Route: 041
     Dates: start: 20180417, end: 20180417
  3. CYCLOPHOSPHAMIDE. [Suspect]
     Active Substance: CYCLOPHOSPHAMIDE
     Indication: T-CELL LYMPHOMA
     Dosage: 1350 MILLIGRAM
     Route: 041
     Dates: start: 20180316
  4. PREDNISONE. [Suspect]
     Active Substance: PREDNISONE
     Indication: T-CELL LYMPHOMA
     Dosage: 100 MILLIGRAM
     Route: 048
     Dates: start: 20180316
  5. ACICLOVIR [Concomitant]
     Active Substance: ACYCLOVIR
     Indication: PROPHYLAXIS
     Route: 065
     Dates: start: 20180316
  6. KCL [Concomitant]
     Active Substance: POTASSIUM CHLORIDE
     Indication: HYPOKALAEMIA
     Route: 065
     Dates: start: 20180317, end: 20180322
  7. DOXORUBICINE [Suspect]
     Active Substance: DOXORUBICIN
     Indication: T-CELL LYMPHOMA
     Route: 041
     Dates: start: 20180316
  8. ETOPOSIDE. [Suspect]
     Active Substance: ETOPOSIDE
     Indication: T-CELL LYMPHOMA
     Dosage: 180 MILLIGRAM
     Route: 041
     Dates: start: 20180316
  9. LAMIVUDINA [Concomitant]
     Active Substance: LAMIVUDINE
     Indication: PROPHYLAXIS
     Route: 065
     Dates: start: 20180314
  10. OLIMEL SACCHE [Concomitant]
     Indication: HYPOKALAEMIA
     Route: 065
     Dates: start: 20180325
  11. FLUCONAZOLE. [Concomitant]
     Active Substance: FLUCONAZOLE
     Indication: PROPHYLAXIS
     Route: 065
     Dates: start: 20180323
  12. LOPERAMIDE [Concomitant]
     Active Substance: LOPERAMIDE
     Indication: PRODUCT USED FOR UNKNOWN INDICATION
     Route: 065
     Dates: start: 20180319
  13. PANTOPRAZOLE [Concomitant]
     Active Substance: PANTOPRAZOLE
     Indication: GASTRITIS PROPHYLAXIS
     Route: 065
     Dates: start: 20180308
  14. SELEPARINA [Concomitant]
     Active Substance: NADROPARIN CALCIUM
     Indication: THROMBOSIS PROPHYLAXIS
     Route: 065
     Dates: start: 20180307
  15. MYCOSTATIN [Concomitant]
     Active Substance: NYSTATIN
     Indication: PROPHYLAXIS
     Route: 065
     Dates: start: 20180314
  16. MEROPENEM. [Concomitant]
     Active Substance: MEROPENEM
     Indication: INFECTION PROPHYLAXIS
     Route: 065
     Dates: start: 20180323
  17. MORPHINE HYDROCHLORIDE [Concomitant]
     Active Substance: MORPHINE HYDROCHLORIDE
     Indication: PRODUCT USED FOR UNKNOWN INDICATION
     Route: 041
     Dates: start: 20180328
  18. MORPHINE HYDROCHLORIDE [Concomitant]
     Active Substance: MORPHINE HYDROCHLORIDE
     Dosage: 50 MILLIGRAM
     Route: 041
     Dates: start: 20180330
  19. KABIVEN SACCHE [Concomitant]
     Indication: HYPOKALAEMIA
     Route: 065
     Dates: start: 20180323, end: 20180324
  20. ISTODAX [Suspect]
     Active Substance: ROMIDEPSIN
     Route: 041
     Dates: start: 20180417, end: 20180417
  21. VINCRISTINE [Suspect]
     Active Substance: VINCRISTINE
     Indication: T-CELL LYMPHOMA
     Dosage: 2 MILLIGRAM
     Route: 041
     Dates: start: 20180316
  22. ALLOPURINE [Concomitant]
     Indication: PROPHYLAXIS
     Route: 065
     Dates: start: 20180307

REACTIONS (3)
  - Mucosal inflammation [Fatal]
  - Diarrhoea [Fatal]
  - Atrial fibrillation [Recovered/Resolved]

NARRATIVE: CASE EVENT DATE: 20180317
